FAERS Safety Report 6911194-8 (Version None)
Quarter: 2010Q3

REPORT INFORMATION
  Report Type: 
  Country: None (occurrence: None)
  Receive Date: 20100806
  Receipt Date: 20100727
  Transmission Date: 20110219
  Serious: Yes (Hospitalization)
  Sender: FDA-Public Use
  Company Number: KR-ROCHE-714118

PATIENT
  Sex: Female
  Weight: 45 kg

DRUGS (10)
  1. BEVACIZUMAB [Suspect]
     Indication: BREAST CANCER
     Dosage: DOSAGE FORM VIALS, DOSE LEVEL 15 MG/KG
     Route: 042
     Dates: start: 20100608, end: 20100630
  2. TRASTUZUMAB [Suspect]
     Indication: BREAST CANCER
     Dosage: LOADING DOSE
     Route: 042
     Dates: start: 20100608
  3. TRASTUZUMAB [Suspect]
     Dosage: LAST DOSE PRIOR TO SAE 30 JUNE 2010, DOSAGE FORM VIALS, DOSE 6 MG/KG
     Route: 042
     Dates: start: 20100630
  4. DOCETAXEL [Suspect]
     Indication: BREAST CANCER
     Dosage: DOSAGE FORM: VIALS, DOSE:75 MG/M2
     Route: 042
     Dates: start: 20100608
  5. CARBOPLATIN [Suspect]
     Indication: BREAST CANCER
     Dosage: DOSAGE FORM: VIALS, DOSE LEVEL 6 AUC
     Route: 042
     Dates: start: 20100608
  6. ISONIAZID [Suspect]
     Indication: PULMONARY TUBERCULOSIS
     Route: 065
     Dates: start: 20100710
  7. MYAMBUTOL [Suspect]
     Indication: PULMONARY TUBERCULOSIS
     Route: 065
     Dates: start: 20100710
  8. PYRAZINAMIDE [Suspect]
     Indication: TUBERCULOSIS
     Route: 065
     Dates: start: 20100710
  9. PYRIDOXINE HCL [Suspect]
     Indication: PULMONARY TUBERCULOSIS
     Route: 065
     Dates: start: 20100710
  10. RIFAMPIN [Suspect]
     Indication: PULMONARY TUBERCULOSIS
     Route: 065
     Dates: start: 20100710

REACTIONS (3)
  - ASTHENIA [None]
  - FEBRILE NEUTROPENIA [None]
  - TUBERCULOSIS [None]
